FAERS Safety Report 25435411 (Version 6)
Quarter: 2025Q3

REPORT INFORMATION
  Report Type: Report from Study
  Country: US (occurrence: US)
  Receive Date: 20250613
  Receipt Date: 20250723
  Transmission Date: 20251020
  Serious: Yes (Other)
  Sender: MALLINCKRODT
  Company Number: US-MALLINCKRODT-MNK202503598

PATIENT
  Age: 18 Month
  Sex: Female
  Weight: 9 kg

DRUGS (2)
  1. CORTICOTROPIN [Suspect]
     Active Substance: CORTICOTROPIN
     Indication: Infantile spasms
     Route: 030
     Dates: start: 20250605, end: 202506
  2. CORTICOTROPIN [Suspect]
     Active Substance: CORTICOTROPIN
     Dates: start: 202506, end: 20250709

REACTIONS (5)
  - Infantile spasms [Recovered/Resolved]
  - Disease recurrence [Recovered/Resolved]
  - Crying [Recovered/Resolved]
  - Irritability [Recovered/Resolved]
  - Mood altered [Recovered/Resolved]

NARRATIVE: CASE EVENT DATE: 20250601
